FAERS Safety Report 10209456 (Version 2)
Quarter: 2014Q2

REPORT INFORMATION
  Report Type: Spontaneous
  Country: US (occurrence: US)
  Receive Date: 20140601
  Receipt Date: 20140608
  Transmission Date: 20141212
  Serious: No
  Sender: FDA-Public Use
  Company Number: US-TEVA-484509USA

PATIENT
  Sex: Female
  Weight: 52.21 kg

DRUGS (7)
  1. NUVIGIL [Suspect]
     Indication: SOMNOLENCE
     Route: 048
  2. SYNTHROID [Concomitant]
     Indication: THYROID HORMONE REPLACEMENT THERAPY
  3. NUCYNTA [Concomitant]
     Indication: PAIN
  4. CYMBALTA [Concomitant]
     Dosage: 90 MILLIGRAM DAILY;
     Route: 048
  5. WELLBUTRIN [Concomitant]
  6. TESTOSTERONE [Concomitant]
     Indication: HORMONE REPLACEMENT THERAPY
     Route: 067
  7. VITAMIN D [Concomitant]
     Indication: VITAMIN D DECREASED

REACTIONS (4)
  - Somnolence [Not Recovered/Not Resolved]
  - Somnolence [Not Recovered/Not Resolved]
  - Sleep disorder [Not Recovered/Not Resolved]
  - Drug ineffective [Not Recovered/Not Resolved]
